FAERS Safety Report 13592434 (Version 4)
Quarter: 2025Q4

REPORT INFORMATION
  Report Type: Spontaneous
  Country: EU (occurrence: EU)
  Receive Date: 20170530
  Receipt Date: 20251106
  Transmission Date: 20260117
  Serious: Yes (Hospitalization, Other)
  Sender: AUROBINDO
  Company Number: EU-APOTEX-2017AP012465

PATIENT
  Age: 70 Year
  Sex: Male

DRUGS (9)
  1. MYCOPHENOLATE MOFETIL [Suspect]
     Active Substance: MYCOPHENOLATE MOFETIL
     Indication: Immunosuppressant drug therapy
     Dosage: 2000 MILLIGRAM
     Route: 065
  2. MYCOPHENOLATE MOFETIL [Suspect]
     Active Substance: MYCOPHENOLATE MOFETIL
     Indication: Immunosuppression
     Dosage: UNK (DOSE REDUCED BY 50 PERCENT)
     Route: 065
  3. MYCOPHENOLATE MOFETIL [Suspect]
     Active Substance: MYCOPHENOLATE MOFETIL
     Indication: Renal transplant
  4. TACROLIMUS [Suspect]
     Active Substance: TACROLIMUS
     Indication: Immunosuppressant drug therapy
     Dosage: UNK
     Route: 065
  5. TACROLIMUS [Suspect]
     Active Substance: TACROLIMUS
     Indication: Renal transplant
  6. TACROLIMUS [Suspect]
     Active Substance: TACROLIMUS
     Indication: Immunosuppression
  7. BASILIXIMAB [Suspect]
     Active Substance: BASILIXIMAB
     Indication: Renal transplant
     Dosage: UNK
     Route: 065
  8. BASILIXIMAB [Suspect]
     Active Substance: BASILIXIMAB
     Indication: Immunosuppressant drug therapy
  9. BASILIXIMAB [Suspect]
     Active Substance: BASILIXIMAB
     Indication: Immunosuppression

REACTIONS (12)
  - Polyomavirus-associated nephropathy [Recovered/Resolved]
  - Pneumonia bacterial [Recovered/Resolved]
  - Basal cell carcinoma [Unknown]
  - Arteriosclerosis [Unknown]
  - Tubulointerstitial nephritis [Unknown]
  - Renal tubular necrosis [Unknown]
  - Kidney transplant rejection [Recovered/Resolved]
  - Glomerular filtration rate decreased [Unknown]
  - Delayed graft function [Recovering/Resolving]
  - Transplant rejection [Recovered/Resolved]
  - Viraemia [Recovered/Resolved]
  - BK virus infection [Recovered/Resolved]
